FAERS Safety Report 4549889-6 (Version None)
Quarter: 2004Q4

REPORT INFORMATION
  Report Type: 
  Country: None (occurrence: None)
  Receive Date: 20041227
  Receipt Date: 20041001
  Transmission Date: 20050328
  Serious: No
  Sender: FDA-Public Use
  Company Number: 04P-163-0276371-00

PATIENT
  Age: 46 Year
  Sex: Female
  Weight: 118 kg

DRUGS (9)
  1. HUMIRA [Suspect]
     Indication: RHEUMATOID ARTHRITIS
     Dosage: 40 MG, 1 IN 2 WK, INJECTION
     Dates: start: 20030301
  2. EPOGEN [Concomitant]
  3. INSULIN LISPRO [Concomitant]
  4. LENTUS [Concomitant]
  5. METOPROLOL [Concomitant]
  6. LOSARTAN POTASSIUM [Concomitant]
  7. ATORVASTATIN [Concomitant]
  8. FUROSEMIDE [Concomitant]
  9. FEXOFENADINE HYDROCHLORIDE [Concomitant]

REACTIONS (1)
  - CYSTITIS [None]
